FAERS Safety Report 19280568 (Version 3)
Quarter: 2021Q2

REPORT INFORMATION
  Report Type: Spontaneous
  Country: CO (occurrence: CO)
  Receive Date: 20210521
  Receipt Date: 20210629
  Transmission Date: 20210717
  Serious: Yes (Other)
  Sender: FDA-Public Use
  Company Number: CO-AMGEN-COLSP2021077406

PATIENT
  Sex: Female

DRUGS (1)
  1. ENBREL [Suspect]
     Active Substance: ETANERCEPT
     Indication: RHEUMATOID ARTHRITIS
     Dosage: 50 MG (EACH 8 DAYS 1 APPLICATION)
     Route: 058
     Dates: start: 2017, end: 202104

REACTIONS (2)
  - Off label use [Unknown]
  - Rheumatoid arthritis [Unknown]
